FAERS Safety Report 13954039 (Version 2)
Quarter: 2017Q4

REPORT INFORMATION
  Report Type: Report from Study
  Country: IT (occurrence: IT)
  Receive Date: 20170911
  Receipt Date: 20171025
  Transmission Date: 20180320
  Serious: Yes (Other)
  Sender: FDA-Public Use
  Company Number: IT-ACCORD-058187

PATIENT
  Age: 65 Year
  Sex: Female
  Weight: 64 kg

DRUGS (4)
  1. PARACETAMOL [Concomitant]
     Active Substance: ACETAMINOPHEN
     Indication: PAIN
     Route: 048
  2. NAVELBINE PIERRE FABRE PHARMA [Concomitant]
     Indication: BREAST CANCER
     Dosage: STRENGTH - 20 MG, 100 MG, CAPSULE MOLLI
     Route: 048
     Dates: start: 20161215, end: 20170315
  3. ZOMETA NOVARTIS EUROPHARM [Concomitant]
     Route: 042
  4. CAPECITABINE ACCORD [Suspect]
     Active Substance: CAPECITABINE
     Indication: BREAST CANCER
     Dosage: STRENGTH - 500 MG
     Route: 048
     Dates: start: 20161215, end: 20170315

REACTIONS (3)
  - Musculoskeletal chest pain [Recovering/Resolving]
  - Blister [Recovering/Resolving]
  - Erythema [Recovering/Resolving]

NARRATIVE: CASE EVENT DATE: 20161216
